FAERS Safety Report 6230690-2 (Version None)
Quarter: 2009Q2

REPORT INFORMATION
  Report Type: 
  Country: None (occurrence: None)
  Receive Date: 20090612
  Receipt Date: 20090612
  Transmission Date: 20091009
  Serious: No
  Sender: FDA-Public Use
  Company Number: None

PATIENT
  Age: 26 Year
  Sex: Female
  Weight: 86.1834 kg

DRUGS (1)
  1. NUVARING [Suspect]
     Indication: CONTRACEPTION
     Dosage: 1 PER MONTH VAG
     Route: 067
     Dates: start: 20070602, end: 20090405

REACTIONS (6)
  - AMENORRHOEA [None]
  - BACK PAIN [None]
  - BREAST PAIN [None]
  - HEADACHE [None]
  - MEDICATION ERROR [None]
  - NAUSEA [None]
